FAERS Safety Report 24271492 (Version 3)
Quarter: 2025Q3

REPORT INFORMATION
  Report Type: Report from Study
  Country: EU (occurrence: EU)
  Receive Date: 20240901
  Receipt Date: 20250730
  Transmission Date: 20251020
  Serious: Yes (Death, Hospitalization, Other)
  Sender: BRISTOL-MYERS SQUIBB COMPANY
  Company Number: EU-BRISTOL-MYERS SQUIBB COMPANY-2024-069469

PATIENT
  Age: 69 Year
  Sex: Male
  Weight: 77.5 kg

DRUGS (19)
  1. OPDIVO [Suspect]
     Active Substance: NIVOLUMAB
     Indication: Gastric cancer
     Route: 042
     Dates: start: 20240402
  2. OXALIPLATIN [Suspect]
     Active Substance: OXALIPLATIN
     Indication: Gastric cancer
     Route: 042
     Dates: start: 20240402, end: 20240416
  3. FLUOROURACIL [Suspect]
     Active Substance: FLUOROURACIL
     Indication: Gastric cancer
     Route: 042
     Dates: start: 20240402
  4. PREDNISOLONE [Suspect]
     Active Substance: PREDNISOLONE
     Indication: Product used for unknown indication
  5. TAMSULOSIN [Concomitant]
     Active Substance: TAMSULOSIN
     Indication: Product used for unknown indication
     Route: 048
  6. ELIQUIS [Concomitant]
     Active Substance: APIXABAN
     Indication: Product used for unknown indication
     Route: 048
  7. SUCRALFORT [Concomitant]
     Indication: Product used for unknown indication
     Route: 048
  8. PANCRELIPASE [Concomitant]
     Active Substance: PANCRELIPASE
     Indication: Product used for unknown indication
     Dosage: 25000 I.E
     Route: 048
  9. OLMESARTAN [Concomitant]
     Active Substance: OLMESARTAN
     Indication: Product used for unknown indication
     Route: 048
  10. NOVALGIN (METAMIZOLE SODIUM) [Concomitant]
     Active Substance: METAMIZOLE SODIUM
     Indication: Product used for unknown indication
     Route: 048
  11. TORSEMIDE [Concomitant]
     Active Substance: TORSEMIDE
     Indication: Product used for unknown indication
     Route: 040
     Dates: start: 20240402, end: 20240407
  12. TORSEMIDE [Concomitant]
     Active Substance: TORSEMIDE
     Route: 040
     Dates: start: 20240408, end: 20240513
  13. TORSEMIDE [Concomitant]
     Active Substance: TORSEMIDE
     Route: 040
     Dates: start: 20240514, end: 20240610
  14. TORSEMIDE [Concomitant]
     Active Substance: TORSEMIDE
     Route: 040
     Dates: start: 20240611, end: 20240806
  15. SPIRONOLACTONE [Concomitant]
     Active Substance: SPIRONOLACTONE
     Indication: Product used for unknown indication
     Route: 048
     Dates: start: 20240402, end: 20240407
  16. SPIRONOLACTONE [Concomitant]
     Active Substance: SPIRONOLACTONE
     Route: 048
     Dates: start: 20240408, end: 20240702
  17. SPIRONOLACTONE [Concomitant]
     Active Substance: SPIRONOLACTONE
     Route: 048
     Dates: start: 20240408, end: 20240702
  18. SPIRONOLACTONE [Concomitant]
     Active Substance: SPIRONOLACTONE
     Route: 048
     Dates: start: 20240703, end: 20240715
  19. SPIRONOLACTONE [Concomitant]
     Active Substance: SPIRONOLACTONE
     Route: 048
     Dates: start: 20240716

REACTIONS (9)
  - Drug-induced liver injury [Fatal]
  - Rash pruritic [Recovered/Resolved]
  - Hypokalaemia [Unknown]
  - Type 3 diabetes mellitus [Unknown]
  - Blood alkaline phosphatase increased [Unknown]
  - Hypocalcaemia [Recovered/Resolved]
  - Lymphopenia [Unknown]
  - Blood glucose increased [Unknown]
  - Testicular swelling [Not Recovered/Not Resolved]

NARRATIVE: CASE EVENT DATE: 20240416
